FAERS Safety Report 8955446 (Version 1)
Quarter: 2012Q4

REPORT INFORMATION
  Report Type: 
  Country: DE (occurrence: DE)
  Receive Date: 20121207
  Receipt Date: 20121207
  Transmission Date: 20130627
  Serious: Yes (Death, Hospitalization)
  Sender: FDA-Public Use
  Company Number: DE-B.I. PHARMACEUTICALS,INC./RIDGEFIELD-2012-DE-02924DE

PATIENT
  Age: 72 Year
  Sex: Male
  Weight: 85 kg

DRUGS (9)
  1. DABIGATRAN [Suspect]
     Dosage: 150 mg
  2. ASS [Concomitant]
     Dosage: 100 mg
  3. TORASEMID [Concomitant]
     Dosage: 5 mg
  4. EZETIMIB/SIMVASTATIN [Concomitant]
     Dosage: 10/40 mg
  5. AMLODIPIN [Concomitant]
     Dosage: 10 mg
  6. SITAGLIPTIN [Concomitant]
     Dosage: 100 mg
  7. GLIMEPIRID [Concomitant]
     Dosage: 1 mg
  8. ACARBOSE [Concomitant]
     Dosage: 100 mg
  9. NITRO SPRAY [Concomitant]

REACTIONS (11)
  - Subdural haematoma [Fatal]
  - Circulatory collapse [Fatal]
  - Craniocerebral injury [Unknown]
  - Contusion [Unknown]
  - Post procedural haemorrhage [Unknown]
  - Skull fracture [Unknown]
  - Pleural effusion [Unknown]
  - Fall [Unknown]
  - Somnolence [Unknown]
  - Disorientation [Unknown]
  - Treatment noncompliance [Unknown]
